FAERS Safety Report 18947772 (Version 4)
Quarter: 2021Q2

REPORT INFORMATION
  Report Type: Spontaneous
  Country: BR (occurrence: BR)
  Receive Date: 20210226
  Receipt Date: 20210408
  Transmission Date: 20210717
  Serious: Yes (Hospitalization, Other)
  Sender: FDA-Public Use
  Company Number: BR-US-PROVELL PHARMACEUTICALS LLC-9221027

PATIENT
  Age: 48 Year
  Sex: Female

DRUGS (1)
  1. LEVOTHYROXINE SODIUM. [Suspect]
     Active Substance: LEVOTHYROXINE SODIUM
     Indication: HYPOTHYROIDISM
     Route: 048

REACTIONS (13)
  - Fibromyalgia [Not Recovered/Not Resolved]
  - Product blister packaging issue [Unknown]
  - Breast mass [Unknown]
  - Hypertension [Not Recovered/Not Resolved]
  - Drug hypersensitivity [Unknown]
  - Lymphadenopathy [Unknown]
  - Lymphoedema [Unknown]
  - Intestinal polyp [Unknown]
  - Eosinophilic oesophagitis [Not Recovered/Not Resolved]
  - Polyp [Unknown]
  - Breast cancer [Recovered/Resolved]
  - Bullous erysipelas [Unknown]
  - Depression [Unknown]

NARRATIVE: CASE EVENT DATE: 2001
